FAERS Safety Report 17041743 (Version 1)
Quarter: 2019Q4

REPORT INFORMATION
  Report Type: Report from Study
  Country: US (occurrence: US)
  Receive Date: 20191118
  Receipt Date: 20191118
  Transmission Date: 20200122
  Serious: Yes (Hospitalization)
  Sender: FDA-Public Use
  Company Number: US-TEVA-2019-US-1137896

PATIENT
  Age: 73 Year
  Sex: Male

DRUGS (32)
  1. XYZAL [Concomitant]
     Active Substance: LEVOCETIRIZINE DIHYDROCHLORIDE
  2. MICONAZOLE. [Concomitant]
     Active Substance: MICONAZOLE
  3. ONDANSETRON [Concomitant]
     Active Substance: ONDANSETRON
  4. POLYETHYLENE GLYCOL [Concomitant]
     Active Substance: POLYETHYLENE GLYCOLS
  5. CLOBETASOL [Concomitant]
     Active Substance: CLOBETASOL
  6. GABAPENTIN. [Concomitant]
     Active Substance: GABAPENTIN
  7. MAGNESIUM OXIDE. [Concomitant]
     Active Substance: MAGNESIUM OXIDE
  8. PANTOPRAZOLE [Concomitant]
     Active Substance: PANTOPRAZOLE
  9. TAMSULOSIN [Concomitant]
     Active Substance: TAMSULOSIN
  10. ERGOCALCIFEROL. [Concomitant]
     Active Substance: ERGOCALCIFEROL
  11. GABAPENTIN. [Concomitant]
     Active Substance: GABAPENTIN
  12. IRINOTECAN [Suspect]
     Active Substance: IRINOTECAN
     Indication: COLORECTAL CANCER METASTATIC
     Route: 042
     Dates: start: 20181230, end: 20191016
  13. CALCIUM CARBONATE. [Concomitant]
     Active Substance: CALCIUM CARBONATE
  14. FINASTERIDE. [Concomitant]
     Active Substance: FINASTERIDE
  15. LEVOTHYROXINE. [Concomitant]
     Active Substance: LEVOTHYROXINE
  16. 5-FLUOROURACIL [Suspect]
     Active Substance: FLUOROURACIL
     Indication: COLORECTAL CANCER METASTATIC
     Route: 042
     Dates: start: 20181230, end: 20191016
  17. MIRTAZAPINE. [Concomitant]
     Active Substance: MIRTAZAPINE
  18. POLYVINYL ALCOHOL [Concomitant]
     Active Substance: POLYVINYL ALCOHOL
  19. PROCHLORPERAZINE. [Concomitant]
     Active Substance: PROCHLORPERAZINE
  20. RISPERDAL [Concomitant]
     Active Substance: RISPERIDONE
  21. LEUCOVORIN. [Suspect]
     Active Substance: LEUCOVORIN
     Indication: COLORECTAL CANCER METASTATIC
     Route: 042
     Dates: start: 20181230, end: 20191016
  22. AMIODARONE [Concomitant]
     Active Substance: AMIODARONE
  23. MINERAL OIL/PETROLATUM [Concomitant]
  24. BEVACIZUMAB. [Suspect]
     Active Substance: BEVACIZUMAB
     Indication: COLORECTAL CANCER METASTATIC
     Route: 042
     Dates: start: 20181230, end: 20191016
  25. BBI608 [Suspect]
     Active Substance: NAPABUCASIN
     Indication: COLORECTAL CANCER METASTATIC
     Route: 065
  26. BACITRACIN. [Concomitant]
     Active Substance: BACITRACIN
  27. DEXAMETHASONE. [Concomitant]
     Active Substance: DEXAMETHASONE
  28. ABREVA [Concomitant]
     Active Substance: DOCOSANOL
  29. AQUAPHOR [Concomitant]
     Active Substance: PETROLATUM
  30. NYSTATIN. [Concomitant]
     Active Substance: NYSTATIN
  31. TRIAMCINOLONE [Concomitant]
     Active Substance: TRIAMCINOLONE
  32. DEXTRAN [Concomitant]
     Active Substance: DEXTRAN

REACTIONS (3)
  - Dyspnoea [Recovering/Resolving]
  - Embolism [Recovering/Resolving]
  - Muscular weakness [Recovering/Resolving]

NARRATIVE: CASE EVENT DATE: 20191030
